FAERS Safety Report 9239565 (Version 1)
Quarter: 2013Q2

REPORT INFORMATION
  Report Type: Spontaneous
  Country: US (occurrence: US)
  Receive Date: 20130418
  Receipt Date: 20130418
  Transmission Date: 20140414
  Serious: No
  Sender: FDA-Public Use
  Company Number: US-SANOFI-AVENTIS-2012SA088756

PATIENT
  Age: 72 Year
  Sex: Female
  Weight: 58.9 kg

DRUGS (2)
  1. ENOXAPARIN SODIUM - WINTHROP [Suspect]
     Indication: THROMBOSIS PROPHYLAXIS
     Route: 065
     Dates: start: 20110420
  2. ENOXAPARIN SODIUM - WINTHROP [Suspect]
     Indication: PULMONARY EMBOLISM
     Route: 065
     Dates: start: 20110420

REACTIONS (2)
  - Nasopharyngitis [Not Recovered/Not Resolved]
  - Drug dose omission [Unknown]
